FAERS Safety Report 10971524 (Version 1)
Quarter: 2015Q1

REPORT INFORMATION
  Report Type: Spontaneous
  Country: PH (occurrence: PH)
  Receive Date: 20150331
  Receipt Date: 20150331
  Transmission Date: 20150721
  Serious: Yes (Hospitalization)
  Sender: FDA-Public Use
  Company Number: PH-GLAXOSMITHKLINE INC.-PH2015GSK040707

PATIENT
  Age: 7 Month
  Sex: Male
  Weight: 9.5 kg

DRUGS (1)
  1. FLIXOTIDE INHALER [Suspect]
     Active Substance: FLUTICASONE PROPIONATE
     Indication: ASTHMA

REACTIONS (1)
  - Pharyngitis [Unknown]

NARRATIVE: CASE EVENT DATE: 20150311
